FAERS Safety Report 20023847 (Version 2)
Quarter: 2021Q4

REPORT INFORMATION
  Report Type: Spontaneous
  Country: CR (occurrence: None)
  Receive Date: 20211102
  Receipt Date: 20211118
  Transmission Date: 20220304
  Serious: Yes (Death, Other)
  Sender: FDA-Public Use
  Company Number: CR-ROCHE-2946208

PATIENT
  Age: 25 Year
  Sex: Female

DRUGS (7)
  1. MABTHERA [Suspect]
     Active Substance: RITUXIMAB
     Indication: Diffuse large B-cell lymphoma
     Route: 042
     Dates: start: 20211014
  2. BENDAMUSTINE [Concomitant]
     Active Substance: BENDAMUSTINE
     Indication: Diffuse large B-cell lymphoma
     Route: 042
     Dates: start: 20211015
  3. ROPOLIVY [Concomitant]
     Indication: Diffuse large B-cell lymphoma
     Route: 042
     Dates: start: 20211015
  4. MORPHINE [Concomitant]
     Active Substance: MORPHINE
  5. TRIMETHOPRIM SULFATE [Concomitant]
     Active Substance: TRIMETHOPRIM SULFATE
  6. ACYCLOVIR [Concomitant]
     Active Substance: ACYCLOVIR
  7. FUROSEMIDE [Concomitant]
     Active Substance: FUROSEMIDE

REACTIONS (3)
  - Sudden death [Fatal]
  - Pseudomonal sepsis [Unknown]
  - Device related sepsis [Unknown]

NARRATIVE: CASE EVENT DATE: 20211026
